FAERS Safety Report 4715054-2 (Version None)
Quarter: 2005Q2

REPORT INFORMATION
  Report Type: 
  Country: None (occurrence: None)
  Receive Date: 20050630
  Receipt Date: 20050524
  Transmission Date: 20051028
  Serious: Yes (Hospitalization)
  Sender: FDA-Public Use
  Company Number: 212806

PATIENT
  Age: 39 Year
  Sex: Female
  Weight: 82.5 kg

DRUGS (4)
  1. AVASTIN [Suspect]
     Indication: COLON CANCER
     Dosage: 390 MG, Q2W, INTRAVENOUS
     Route: 042
     Dates: start: 20040810
  2. CATAFLAM [Concomitant]
  3. COUMADIN [Concomitant]
  4. NSAIDS (NON-STEROIDAL ANIT-INFLAMMATORY DRUG NOS) [Concomitant]

REACTIONS (3)
  - GASTROINTESTINAL HAEMORRHAGE [None]
  - HAEMATOCRIT DECREASED [None]
  - HAEMOGLOBIN DECREASED [None]
